FAERS Safety Report 10595616 (Version 1)
Quarter: 2014Q4

REPORT INFORMATION
  Report Type: Spontaneous
  Country: US (occurrence: US)
  Receive Date: 20141120
  Receipt Date: 20141120
  Transmission Date: 20150529
  Serious: Yes (Other)
  Sender: FDA-Public Use
  Company Number: US-TEVA-523220USA

PATIENT
  Age: 69 Year
  Sex: Male
  Weight: 56 kg

DRUGS (1)
  1. TREANDA [Suspect]
     Active Substance: BENDAMUSTINE HYDROCHLORIDE
     Indication: LYMPHOMA
     Route: 042
     Dates: start: 20141015

REACTIONS (4)
  - Injection site erythema [Recovering/Resolving]
  - Injection site thrombosis [Recovering/Resolving]
  - Injection site pain [Recovering/Resolving]
  - Rash erythematous [Recovering/Resolving]
